FAERS Safety Report 6933350-5 (Version None)
Quarter: 2010Q3

REPORT INFORMATION
  Report Type: 
  Country: None (occurrence: None)
  Receive Date: 20100818
  Receipt Date: 20100818
  Transmission Date: 20110219
  Serious: No
  Sender: FDA-Public Use
  Company Number: None

PATIENT
  Age: 84 Year
  Sex: Male
  Weight: 71.6683 kg

DRUGS (1)
  1. KONSYL [Suspect]

REACTIONS (2)
  - ABDOMINAL DISCOMFORT [None]
  - NO THERAPEUTIC RESPONSE [None]
